FAERS Safety Report 5710902-1 (Version None)
Quarter: 2008Q2

REPORT INFORMATION
  Report Type: 
  Country: None (occurrence: None)
  Receive Date: 20080421
  Receipt Date: 20080320
  Transmission Date: 20081010
  Serious: No
  Sender: FDA-Public Use
  Company Number: US-BAYER-200812459NA

PATIENT
  Age: 25 Year
  Sex: Female
  Weight: 73 kg

DRUGS (1)
  1. MIRENA [Suspect]
     Indication: CONTRACEPTION
     Route: 015
     Dates: start: 20070201

REACTIONS (7)
  - COITAL BLEEDING [None]
  - DYSMENORRHOEA [None]
  - HYPOMENORRHOEA [None]
  - MENSTRUATION DELAYED [None]
  - PROCEDURAL PAIN [None]
  - SMEAR CERVIX ABNORMAL [None]
  - VAGINAL DISCHARGE [None]
